FAERS Safety Report 22283551 (Version 1)
Quarter: 2023Q2

REPORT INFORMATION
  Report Type: Spontaneous
  Country: US (occurrence: None)
  Receive Date: 20230503
  Receipt Date: 20230503
  Transmission Date: 20230722
  Serious: Yes (unspecified)
  Sender: FDA-Public Use
  Company Number: None

PATIENT
  Age: 32 Year
  Sex: Female
  Weight: 58.95 kg

DRUGS (3)
  1. FENTANYL [Suspect]
     Active Substance: FENTANYL
     Indication: Drug dependence
     Dosage: OTHER QUANTITY : 1 TABLET(S);?FREQUENCY : DAILY;?
     Route: 055
     Dates: start: 20230307, end: 20230502
  2. VIVITROL [Concomitant]
     Active Substance: NALTREXONE
  3. TYLENOL [Concomitant]
     Active Substance: ACETAMINOPHEN

REACTIONS (5)
  - Stevens-Johnson syndrome [None]
  - Dehydration [None]
  - Skin ulcer [None]
  - Substance use [None]
  - Toxic epidermal necrolysis [None]

NARRATIVE: CASE EVENT DATE: 20230502
